APPROVED DRUG PRODUCT: DEMADEX
Active Ingredient: TORSEMIDE
Strength: 50MG/5ML (10MG/ML) **Federal Register determination that product was not discontinued or withdrawn for safety or effectiveness reasons**
Dosage Form/Route: SOLUTION;INTRAVENOUS
Application: N020137 | Product #002
Applicant: HOFFMANN LA ROCHE INC
Approved: Aug 23, 1993 | RLD: Yes | RS: No | Type: DISCN